FAERS Safety Report 9476644 (Version 1)
Quarter: 2013Q3

REPORT INFORMATION
  Report Type: Spontaneous
  Country: US (occurrence: US)
  Receive Date: 20130826
  Receipt Date: 20130826
  Transmission Date: 20140515
  Serious: Yes (Death, Life-Threatening, Other)
  Sender: FDA-Public Use
  Company Number: US-ROXANE LABORATORIES, INC.-2013-RO-01412RO

PATIENT
  Age: 23 Year
  Sex: Male

DRUGS (3)
  1. METHADONE [Suspect]
     Route: 048
  2. ALPRAZOLAM [Suspect]
  3. CANNABINOIDS [Suspect]

REACTIONS (7)
  - Toxicity to various agents [Fatal]
  - Brain injury [Unknown]
  - Unresponsive to stimuli [Recovered/Resolved]
  - Rhabdomyolysis [Unknown]
  - Multi-organ failure [Unknown]
  - Renal failure acute [Unknown]
  - Pulmonary oedema [Unknown]
